FAERS Safety Report 19589356 (Version 1)
Quarter: 2021Q3

REPORT INFORMATION
  Report Type: Report from Study
  Country: IE (occurrence: IE)
  Receive Date: 20210721
  Receipt Date: 20210721
  Transmission Date: 20211014
  Serious: Yes (Hospitalization)
  Sender: FDA-Public Use
  Company Number: IE-ASTRAZENECA-2021A630266

PATIENT
  Age: 23330 Day
  Sex: Female

DRUGS (10)
  1. LANSONPRAZOLE [Concomitant]
     Route: 050
  2. TOPAMAX [Concomitant]
     Active Substance: TOPIRAMATE
     Route: 050
  3. VENTOLIN [Concomitant]
     Active Substance: ALBUTEROL SULFATE
     Dosage: PRN (AS REQUIRED)
     Route: 050
  4. FASENRA [Suspect]
     Active Substance: BENRALIZUMAB
     Indication: ASTHMA
     Route: 058
     Dates: start: 20210325
  5. SYMBICORT [Suspect]
     Active Substance: BUDESONIDE\FORMOTEROL FUMARATE DIHYDRATE
     Route: 050
  6. ALVESCO [Suspect]
     Active Substance: CICLESONIDE
     Route: 050
  7. AZITHROMYCIN ANHYDROUS. [Concomitant]
     Active Substance: AZITHROMYCIN ANHYDROUS
     Route: 050
  8. MONTELEUKAST [Concomitant]
     Active Substance: MONTELUKAST SODIUM
     Route: 050
  9. CRESTOR [Suspect]
     Active Substance: ROSUVASTATIN CALCIUM
     Route: 050
  10. ARCOXIA [Concomitant]
     Active Substance: ETORICOXIB
     Route: 050

REACTIONS (1)
  - Dyspnoea [Not Recovered/Not Resolved]

NARRATIVE: CASE EVENT DATE: 20210624
